FAERS Safety Report 10008764 (Version 2)
Quarter: 2014Q1

REPORT INFORMATION
  Report Type: Spontaneous
  Country: US (occurrence: US)
  Receive Date: 20140312
  Receipt Date: 20140312
  Transmission Date: 20141002
  Serious: Yes (Other)
  Sender: FDA-Public Use
  Company Number: US-INCYTE CORPORATION-2012IN000376

PATIENT
  Age: 75 Year
  Sex: Female
  Weight: 55.33 kg

DRUGS (4)
  1. JAKAFI [Suspect]
     Indication: MYELOFIBROSIS
     Dosage: 15 MG, BID
     Route: 048
     Dates: start: 20120210, end: 20120301
  2. JAKAFI [Suspect]
     Dosage: 15 MG, QD
     Route: 048
     Dates: start: 20120302, end: 20120308
  3. JAKAFI [Suspect]
     Dosage: 5 MG, BID
     Route: 048
     Dates: start: 20120309
  4. CLONAZEPAM [Concomitant]
     Dosage: 0.5 MG, UNK

REACTIONS (1)
  - Platelet count decreased [Not Recovered/Not Resolved]
